FAERS Safety Report 6279741-X (Version None)
Quarter: 2009Q3

REPORT INFORMATION
  Report Type: 
  Country: None (occurrence: None)
  Receive Date: 20090723
  Receipt Date: 20090714
  Transmission Date: 20100115
  Serious: Yes (Other)
  Sender: FDA-Public Use
  Company Number: US-NOVOPROD-282455

PATIENT
  Sex: Male
  Weight: 48 kg

DRUGS (1)
  1. NOVOSEVEN [Suspect]
     Indication: FACTOR VII DEFICIENCY
     Dosage: 2 MG EVERY 48-72 HOURS

REACTIONS (1)
  - HAEMARTHROSIS [None]
